FAERS Safety Report 15222203 (Version 2)
Quarter: 2018Q3

REPORT INFORMATION
  Report Type: Spontaneous
  Country: FR (occurrence: FR)
  Receive Date: 20180731
  Receipt Date: 20180731
  Transmission Date: 20181010
  Serious: Yes (Life-Threatening, Hospitalization)
  Sender: FDA-Public Use
  Company Number: PHHY2018FR061027

PATIENT
  Age: 66 Year
  Sex: Male
  Weight: 59 kg

DRUGS (10)
  1. BISOCE [Suspect]
     Active Substance: BISOPROLOL
     Indication: SUICIDE ATTEMPT
     Dosage: 200 MG, UNK
     Route: 048
  2. CALCIDOSE VITAMINE D [Concomitant]
     Active Substance: CALCIUM\CHOLECALCIFEROL
     Indication: PRODUCT USED FOR UNKNOWN INDICATION
     Dosage: UNK
     Route: 048
  3. BROMAZEPAM [Concomitant]
     Active Substance: BROMAZEPAM
     Indication: PRODUCT USED FOR UNKNOWN INDICATION
     Dosage: UNK
     Route: 065
  4. ZOPICLONE [Suspect]
     Active Substance: ZOPICLONE
     Indication: SUICIDE ATTEMPT
     Dosage: 225 MG, UNK
     Route: 048
  5. VALSARTAN. [Suspect]
     Active Substance: VALSARTAN
     Indication: SUICIDE ATTEMPT
     Dosage: 3200 MG, UNK
     Route: 048
  6. PAROXETINE HYDROCHLORIDE. [Suspect]
     Active Substance: PAROXETINE HYDROCHLORIDE
     Indication: SUICIDE ATTEMPT
     Dosage: 300 MG, UNK
     Route: 048
  7. ATORVASTATINE [Suspect]
     Active Substance: ATORVASTATIN
     Indication: SUICIDE ATTEMPT
     Dosage: 1600 MG, UNK
     Route: 048
  8. ALPRAZOLAM. [Concomitant]
     Active Substance: ALPRAZOLAM
     Indication: PRODUCT USED FOR UNKNOWN INDICATION
     Dosage: UNK
     Route: 065
  9. ASPEGIC [Concomitant]
     Active Substance: ASPIRIN DL-LYSINE
     Indication: PRODUCT USED FOR UNKNOWN INDICATION
     Dosage: UNK
     Route: 065
  10. DOLIPRANE [Concomitant]
     Active Substance: ACETAMINOPHEN
     Indication: PRODUCT USED FOR UNKNOWN INDICATION
     Dosage: UNK
     Route: 065

REACTIONS (2)
  - Somnolence [Recovered/Resolved]
  - Bradycardia [Recovered/Resolved]

NARRATIVE: CASE EVENT DATE: 20180515
